FAERS Safety Report 21038533 (Version 2)
Quarter: 2023Q2

REPORT INFORMATION
  Report Type: Spontaneous
  Country: US (occurrence: US)
  Receive Date: 20220704
  Receipt Date: 20230609
  Transmission Date: 20230722
  Serious: Yes (Hospitalization, Other)
  Sender: FDA-Public Use
  Company Number: US-SA-SAC20220630001075

PATIENT
  Age: 26 Year
  Sex: Male
  Weight: 85.896 kg

DRUGS (4)
  1. CEREZYME [Suspect]
     Active Substance: IMIGLUCERASE
     Indication: Gaucher^s disease
     Dosage: 5200 IU, QOW
     Route: 042
     Dates: start: 20190328
  2. TRAZODONE HCL [Concomitant]
     Active Substance: TRAZODONE HYDROCHLORIDE
  3. MELOXICAM [Concomitant]
     Active Substance: MELOXICAM
  4. TYLENOL [Concomitant]
     Active Substance: ACETAMINOPHEN

REACTIONS (4)
  - Pneumothorax [Unknown]
  - Sinusitis [Unknown]
  - Gastroenteritis viral [Unknown]
  - Hypervolaemia [Unknown]
